FAERS Safety Report 8598289-0 (Version None)
Quarter: 2012Q3

REPORT INFORMATION
  Report Type: 
  Country: None (occurrence: None)
  Receive Date: 20120806
  Receipt Date: 20120806
  Transmission Date: 20120928
  Serious: Yes (Other)
  Sender: FDA-Public Use
  Company Number: None

PATIENT
  Age: 33 Year
  Sex: Female
  Weight: 96.1626 kg

DRUGS (1)
  1. TOCILIZUMAB [Suspect]
     Dosage: 8MG/KG MONTHLY IV
     Route: 042

REACTIONS (1)
  - GENERALISED OEDEMA [None]
